FAERS Safety Report 18675055 (Version 1)
Quarter: 2020Q4

REPORT INFORMATION
  Report Type: Spontaneous
  Country: US (occurrence: US)
  Receive Date: 20201228
  Receipt Date: 20201228
  Transmission Date: 20210114
  Serious: Yes (Hospitalization)
  Sender: FDA-Public Use
  Company Number: None

PATIENT
  Sex: Female

DRUGS (22)
  1. LISINOPRIL. [Concomitant]
     Active Substance: LISINOPRIL
  2. NYSTOP [Concomitant]
     Active Substance: NYSTATIN
  3. IRON [Concomitant]
     Active Substance: IRON
  4. PREDNISONE. [Concomitant]
     Active Substance: PREDNISONE
  5. ARAVA [Concomitant]
     Active Substance: LEFLUNOMIDE
  6. DIAZEPAM. [Concomitant]
     Active Substance: DIAZEPAM
  7. PRILOSEC [Concomitant]
     Active Substance: OMEPRAZOLE MAGNESIUM
  8. VIT D [Concomitant]
     Active Substance: VITAMIN D NOS
  9. ENOXAPARIN [Concomitant]
     Active Substance: ENOXAPARIN
  10. MULTI VIT [Concomitant]
     Active Substance: VITAMINS
  11. XELJANZ [Suspect]
     Active Substance: TOFACITINIB CITRATE
     Indication: RHEUMATOID ARTHRITIS
     Route: 048
     Dates: start: 20160408
  12. DIOVAN [Concomitant]
     Active Substance: VALSARTAN
  13. FLONASE [Concomitant]
     Active Substance: FLUTICASONE PROPIONATE
  14. AVALIDE [Concomitant]
     Active Substance: HYDROCHLOROTHIAZIDE\IRBESARTAN
  15. FOLIC ACID. [Concomitant]
     Active Substance: FOLIC ACID
  16. HYDROMORPHONE [Concomitant]
     Active Substance: HYDROMORPHONE
  17. CA CITRATE [Concomitant]
  18. HYDROXYCHLOR [Concomitant]
     Active Substance: HYDROXYCHLOROQUINE
  19. NORVASC [Concomitant]
     Active Substance: AMLODIPINE BESYLATE
  20. PROAIR HFA [Concomitant]
     Active Substance: ALBUTEROL SULFATE
  21. CYMBALTA [Concomitant]
     Active Substance: DULOXETINE HYDROCHLORIDE
  22. DIPHENHYDRAM [Concomitant]

REACTIONS (3)
  - Treatment noncompliance [None]
  - Seizure [None]
  - Fatigue [None]
